FAERS Safety Report 25439979 (Version 1)
Quarter: 2025Q2

REPORT INFORMATION
  Report Type: Spontaneous
  Country: US (occurrence: None)
  Receive Date: 20250614
  Receipt Date: 20250614
  Transmission Date: 20250717
  Serious: Yes (Other)
  Sender: FDA-CTU
  Company Number: None

PATIENT
  Sex: Female

DRUGS (7)
  1. LENALIDOMIDE [Suspect]
     Active Substance: LENALIDOMIDE
     Indication: Plasma cell myeloma
     Route: 048
     Dates: start: 20250116
  2. ASPIRIN [Concomitant]
     Active Substance: ASPIRIN
  3. DARZALEX SOL [Concomitant]
  4. DEXAMETHASONE [Concomitant]
     Active Substance: DEXAMETHASONE
  5. ELIQUIS [Concomitant]
     Active Substance: APIXABAN
  6. PROCHLORPER [Concomitant]
  7. VELCADE [Concomitant]
     Active Substance: BORTEZOMIB

REACTIONS (3)
  - Nausea [None]
  - Vomiting [None]
  - Abdominal pain [None]
